FAERS Safety Report 5962618-4 (Version None)
Quarter: 2008Q4

REPORT INFORMATION
  Report Type: 
  Country: None (occurrence: None)
  Receive Date: 20081121
  Receipt Date: 20081118
  Transmission Date: 20090506
  Serious: Yes (Death, Hospitalization, Other)
  Sender: FDA-Public Use
  Company Number: PHEH2008US09212

PATIENT
  Sex: Female
  Weight: 70.748 kg

DRUGS (20)
  1. RECLAST [Suspect]
     Indication: OSTEOPOROSIS
     Dosage: 5 MG, YEARLY
     Dates: start: 20081014
  2. ADVAIR HFA [Concomitant]
     Dosage: 250/50, 1 PUFF, BID
  3. ALBUTEROL [Concomitant]
     Dosage: 2 PUFF, Q4-6 HR
  4. DURAGESIC-100 [Concomitant]
     Dosage: 25 MCG, Q 3 DAYS
  5. SINGULAIR [Concomitant]
     Dosage: 10 MG, QD
  6. TEGRETOL [Concomitant]
     Dosage: 200 MG, TID
  7. DIAZEPAM [Concomitant]
     Dosage: 5 MG, BID
  8. DEPAKOTE [Concomitant]
     Dosage: 500 MG, 5QD
  9. VITAMIN B COMPLEX CAP [Concomitant]
     Dosage: UNK
  10. LASIX [Concomitant]
     Dosage: 20 MG, 1.5 TAB, QD
  11. ZOCOR [Concomitant]
     Dosage: 10 MG, QD
  12. PREVACID [Concomitant]
     Dosage: 30 MG, BID
  13. FLEXERIL [Concomitant]
     Dosage: 10 MG, BID
  14. RESTORIL [Concomitant]
     Dosage: UNK
  15. DARVOCET-N 100 [Concomitant]
     Dosage: 100 UNK, PRN Q4-6 HR
  16. ZOFRAN [Concomitant]
     Dosage: Q 4-6 HR, PRN
  17. MIACALCIN [Concomitant]
     Dosage: UNK
  18. OXYGEN [Concomitant]
     Dosage: 2L
  19. NU-IRON [Concomitant]
     Dosage: 325 UNK, BID
  20. COUMADIN [Concomitant]
     Dosage: 2.5 MG, QOD

REACTIONS (2)
  - DEATH [None]
  - GRAND MAL CONVULSION [None]
